FAERS Safety Report 8222163-2 (Version None)
Quarter: 2012Q1

REPORT INFORMATION
  Report Type: 
  Country: None (occurrence: None)
  Receive Date: 20120320
  Receipt Date: 20120314
  Transmission Date: 20120608
  Serious: Yes (Hospitalization)
  Sender: FDA-Public Use
  Company Number: US-JNJFOC-20100801686

PATIENT
  Sex: Female

DRUGS (1)
  1. LEVAQUIN [Suspect]
     Indication: CHRONIC OBSTRUCTIVE PULMONARY DISEASE
     Route: 048
     Dates: start: 20070423, end: 20070523

REACTIONS (6)
  - GASTROINTESTINAL DISORDER [None]
  - TENDONITIS [None]
  - PAIN IN EXTREMITY [None]
  - BACTERIAL INFECTION [None]
  - DEPRESSION [None]
  - ARTHRALGIA [None]
